FAERS Safety Report 8158005-3 (Version None)
Quarter: 2012Q1

REPORT INFORMATION
  Report Type: 
  Country: None (occurrence: None)
  Receive Date: 20120222
  Receipt Date: 20120216
  Transmission Date: 20120608
  Serious: Yes (Life-Threatening, Hospitalization, Other)
  Sender: FDA-Public Use
  Company Number: PHHY2012BG013772

PATIENT
  Sex: Female

DRUGS (5)
  1. BELLERGAMIN [Interacting]
     Dosage: 4 DF, ONCE/SINGLE
     Dates: start: 20120130
  2. KEPPRA [Interacting]
     Indication: EPILEPSY
     Dosage: 500 MG, BID
  3. TRILEPTAL [Suspect]
     Indication: EPILEPSY
     Dosage: 600 MG, BID
  4. BELLERGAMIN [Interacting]
     Indication: EPILEPSY
     Dosage: UNK UKN, UNK
  5. LAMICTAL [Interacting]
     Indication: EPILEPSY
     Dosage: 100 MG, BID

REACTIONS (7)
  - VERTIGO [None]
  - SUICIDE ATTEMPT [None]
  - DRUG INTERACTION [None]
  - NAUSEA [None]
  - HEADACHE [None]
  - TOXICITY TO VARIOUS AGENTS [None]
  - COMA [None]
